FAERS Safety Report 12001471 (Version 7)
Quarter: 2016Q2

REPORT INFORMATION
  Report Type: Spontaneous
  Country: US (occurrence: US)
  Receive Date: 20160204
  Receipt Date: 20160411
  Transmission Date: 20160815
  Serious: Yes (Hospitalization)
  Sender: FDA-Public Use
  Company Number: US-ACTELION-A-NJ2016-130739

PATIENT
  Age: 52 Year
  Sex: Male

DRUGS (5)
  1. RIOCIGUAT [Concomitant]
     Active Substance: RIOCIGUAT
  2. XARELTO [Concomitant]
     Active Substance: RIVAROXABAN
  3. VELETRI [Suspect]
     Active Substance: EPOPROSTENOL
     Dosage: UNK
     Route: 042
  4. OPSUMIT [Suspect]
     Active Substance: MACITENTAN
     Indication: PULMONARY ARTERIAL HYPERTENSION
     Dosage: 10 MG, QD
     Route: 048
     Dates: start: 201401
  5. VELETRI [Suspect]
     Active Substance: EPOPROSTENOL
     Indication: PULMONARY ARTERIAL HYPERTENSION
     Dosage: 50 NG/KG, PER MIN
     Route: 042
     Dates: start: 20141024

REACTIONS (21)
  - Acute kidney injury [Recovered/Resolved]
  - Drug dose omission [Not Recovered/Not Resolved]
  - Urinary tract infection [Unknown]
  - Thrombosis in device [Not Recovered/Not Resolved]
  - Blood culture negative [Recovered/Resolved]
  - Hypoaesthesia [Recovering/Resolving]
  - Disorientation [Unknown]
  - Pneumonia [Unknown]
  - Urine analysis abnormal [Unknown]
  - Device dislocation [Unknown]
  - Gastroenteritis viral [Recovering/Resolving]
  - Melaena [Recovering/Resolving]
  - Fatigue [Unknown]
  - Malaise [Unknown]
  - Chest pain [Recovering/Resolving]
  - Sepsis [Recovered/Resolved]
  - Central venous catheterisation [Recovered/Resolved]
  - Dyspnoea [Unknown]
  - Abdominal pain [Unknown]
  - Septic shock [Recovered/Resolved]
  - Altered state of consciousness [Unknown]

NARRATIVE: CASE EVENT DATE: 201602
